FAERS Safety Report 14692583 (Version 1)
Quarter: 2018Q1

REPORT INFORMATION
  Report Type: Spontaneous
  Country: US (occurrence: US)
  Receive Date: 20180329
  Receipt Date: 20180329
  Transmission Date: 20180509
  Serious: Yes (Hospitalization)
  Sender: FDA-Public Use
  Company Number: US-HORIZON-KRY-0085-2018

PATIENT
  Age: 58 Year
  Sex: Male

DRUGS (2)
  1. KRYSTEXXA [Suspect]
     Active Substance: PEGLOTICASE
     Indication: GOUT
     Dosage: 8 MG PER PI INSTRUCTIONS
     Dates: start: 20180322, end: 20180322
  2. SOLU-MEDROL [Concomitant]
     Active Substance: METHYLPREDNISOLONE SODIUM SUCCINATE
     Indication: PREMEDICATION

REACTIONS (6)
  - Nausea [Unknown]
  - Retching [Unknown]
  - Dyspnoea [Unknown]
  - Contraindicated product administered [Recovered/Resolved]
  - Fatigue [Unknown]
  - Transfusion [Unknown]

NARRATIVE: CASE EVENT DATE: 201803
